FAERS Safety Report 8311714-5 (Version None)
Quarter: 2012Q2

REPORT INFORMATION
  Report Type: 
  Country: None (occurrence: None)
  Receive Date: 20120425
  Receipt Date: 20120416
  Transmission Date: 20120825
  Serious: Yes (Death)
  Sender: FDA-Public Use
  Company Number: US-MILLENNIUM PHARMACEUTICALS, INC.-2011-05432

PATIENT

DRUGS (6)
  1. FLUCONAZOLE [Concomitant]
     Indication: PROPHYLAXIS
  2. CYCLOPHOSPHAMIDE [Suspect]
     Indication: PRIMARY AMYLOIDOSIS
     Dosage: 300 MG/M2, CYCLIC
  3. ACYCLOVIR [Concomitant]
     Indication: PROPHYLAXIS
  4. OMEPRAZOLE [Concomitant]
     Indication: PROPHYLAXIS
  5. VELCADE [Suspect]
     Indication: PRIMARY AMYLOIDOSIS
     Dosage: 1.3 MG/M2, CYCLIC
  6. DEXAMETHASONE [Suspect]
     Indication: PRIMARY AMYLOIDOSIS
     Dosage: UNK

REACTIONS (1)
  - CARDIAC AMYLOIDOSIS [None]
